FAERS Safety Report 6475124-8 (Version None)
Quarter: 2009Q4

REPORT INFORMATION
  Report Type: 
  Country: None (occurrence: None)
  Receive Date: 20091204
  Receipt Date: 20090518
  Transmission Date: 20100525
  Serious: Yes (Other)
  Sender: FDA-Public Use
  Company Number: US-ELI_LILLY_AND_COMPANY-US200904000837

PATIENT
  Sex: Female

DRUGS (12)
  1. CYMBALTA [Suspect]
     Dosage: 60 MG, DAILY (1/D)
     Dates: start: 20080101
  2. CYMBALTA [Suspect]
     Dosage: 30 MG, UNK
  3. OMEPRAZOLE [Concomitant]
     Dosage: 20 MG, DAILY (1/D)
  4. METOPROLOL [Concomitant]
     Dosage: 50 MG, DAILY (1/D)
  5. AMLODIPINE [Concomitant]
     Dosage: 10 MG, DAILY (1/D)
  6. SIMVASTATIN [Concomitant]
     Dosage: 40 MG, EACH EVENING
  7. FERROUS SULFATE TAB [Concomitant]
     Dosage: 1 D/F, 2/D
  8. COZAAR [Concomitant]
     Dosage: 100 MG, DAILY (1/D)
  9. TYLENOL (CAPLET) [Concomitant]
     Dosage: 1 D/F, AS NEEDED
  10. ASPIRIN [Concomitant]
     Dosage: 81 MG, DAILY (1/D)
  11. MULTIVIT [Concomitant]
     Dosage: 1 D/F, DAILY (1/D)
  12. ICAPS [Concomitant]
     Dosage: 1 D/F, 2/D

REACTIONS (2)
  - MACULAR DEGENERATION [None]
  - RETINAL HAEMORRHAGE [None]
